FAERS Safety Report 9785855 (Version 1)
Quarter: 2013Q4

REPORT INFORMATION
  Report Type: Spontaneous
  Country: FR (occurrence: None)
  Receive Date: 20131224
  Receipt Date: 20131224
  Transmission Date: 20140711
  Serious: Yes (Hospitalization)
  Sender: FDA-Public Use
  Company Number: SYM-2013-14064

PATIENT
  Age: 77 Year
  Sex: Male

DRUGS (5)
  1. FLAGYL (METRONIDAZOLE) (METRONIDAZOLE) [Suspect]
     Indication: PRODUCT USED FOR UNKNOWN INDICATION
     Route: 048
     Dates: start: 201310, end: 20131118
  2. CIPROFLOXACIN [Suspect]
     Indication: PRODUCT USED FOR UNKNOWN INDICATION
     Route: 048
     Dates: start: 201310, end: 20131118
  3. REMICADE (INFLIXIMAB) (INFLIXIMAB) [Suspect]
     Indication: PRODUCT USED FOR UNKNOWN INDICATION
     Route: 042
     Dates: start: 20111108, end: 20131003
  4. CORTANCYL (PREDNISONE) (PREDNISONE) [Concomitant]
  5. IMUREL (AZATHIOPRINE) (AZATHIOPRINE) [Concomitant]

REACTIONS (4)
  - Polyneuropathy [None]
  - Hypoaesthesia [None]
  - Burning sensation [None]
  - Dysstasia [None]
